FAERS Safety Report 19218528 (Version 1)
Quarter: 2021Q2

REPORT INFORMATION
  Report Type: Spontaneous
  Country: US (occurrence: US)
  Receive Date: 20210505
  Receipt Date: 20210505
  Transmission Date: 20210717
  Serious: No
  Sender: FDA-Public Use
  Company Number: US-009507513-2104USA006298

PATIENT
  Age: 60 Year
  Sex: Male

DRUGS (4)
  1. NOXAFIL [Suspect]
     Active Substance: POSACONAZOLE
     Indication: BURSITIS
  2. NOXAFIL [Suspect]
     Active Substance: POSACONAZOLE
     Indication: FUNGAL INFECTION
     Dosage: 300 MILLIGRAM, QD
  3. METHOTREXATE. [Concomitant]
     Active Substance: METHOTREXATE
     Indication: RHEUMATOID ARTHRITIS
     Dosage: 15 MILLIGRAM, ONCE PER WEEK
  4. FOLIC ACID. [Concomitant]
     Active Substance: FOLIC ACID
     Indication: RHEUMATOID ARTHRITIS
     Dosage: UNK, ONCE PER DAY

REACTIONS (1)
  - Off label use [Unknown]
